FAERS Safety Report 10542234 (Version 2)
Quarter: 2014Q4

REPORT INFORMATION
  Report Type: Spontaneous
  Country: US (occurrence: US)
  Receive Date: 20141024
  Receipt Date: 20141211
  Transmission Date: 20150529
  Serious: No
  Sender: FDA-Public Use
  Company Number: US-ASTRAZENECA-2014SE80265

PATIENT
  Sex: Female

DRUGS (2)
  1. NEXIUM 24HR [Suspect]
     Active Substance: ESOMEPRAZOLE MAGNESIUM
     Indication: DYSPEPSIA
     Route: 048
  2. PREVACID [Suspect]
     Active Substance: LANSOPRAZOLE
     Route: 065

REACTIONS (5)
  - Decreased appetite [Unknown]
  - Drug ineffective [Unknown]
  - Abdominal distension [Unknown]
  - Abdominal discomfort [Unknown]
  - Flatulence [Unknown]
